FAERS Safety Report 4621605-9 (Version None)
Quarter: 2005Q1

REPORT INFORMATION
  Report Type: 
  Country: None (occurrence: None)
  Receive Date: 20050329
  Receipt Date: 20050315
  Transmission Date: 20050727
  Serious: Yes (Hospitalization, Other)
  Sender: FDA-Public Use
  Company Number: 2005042210

PATIENT
  Sex: Female

DRUGS (1)
  1. UNASYN [Suspect]
     Indication: ILL-DEFINED DISORDER

REACTIONS (2)
  - IMPAIRED WORK ABILITY [None]
  - MALAISE [None]
